FAERS Safety Report 14010099 (Version 3)
Quarter: 2017Q4

REPORT INFORMATION
  Report Type: Report from Study
  Country: US (occurrence: US)
  Receive Date: 20170926
  Receipt Date: 20171208
  Transmission Date: 20180321
  Serious: Yes (Hospitalization)
  Sender: FDA-Public Use
  Company Number: US-BIOGEN-2017BI00462601

PATIENT
  Age: 57 Year
  Sex: Female

DRUGS (2)
  1. AVONEX [Suspect]
     Active Substance: INTERFERON BETA-1A
     Route: 030
     Dates: end: 201709
  2. AVONEX [Suspect]
     Active Substance: INTERFERON BETA-1A
     Indication: MULTIPLE SCLEROSIS
     Route: 030
     Dates: start: 20120402, end: 20140602

REACTIONS (11)
  - Dysarthria [Unknown]
  - Musculoskeletal stiffness [Not Recovered/Not Resolved]
  - Incontinence [Not Recovered/Not Resolved]
  - Confusional state [Unknown]
  - Motor dysfunction [Not Recovered/Not Resolved]
  - Loss of control of legs [Recovered/Resolved]
  - Weight decreased [Not Recovered/Not Resolved]
  - Agraphia [Not Recovered/Not Resolved]
  - Central nervous system lesion [Recovered/Resolved]
  - Musculoskeletal disorder [Not Recovered/Not Resolved]
  - Gait inability [Not Recovered/Not Resolved]

NARRATIVE: CASE EVENT DATE: 201706
